FAERS Safety Report 7621779-1 (Version None)
Quarter: 2011Q3

REPORT INFORMATION
  Report Type: 
  Country: None (occurrence: None)
  Receive Date: 20110719
  Receipt Date: 20110711
  Transmission Date: 20111222
  Serious: Yes (Hospitalization)
  Sender: FDA-Public Use
  Company Number: US-ASTRAZENECA-2011SE41519

PATIENT
  Age: 51 Year
  Sex: Female

DRUGS (2)
  1. PRILOSEC [Concomitant]
  2. NEXIUM [Suspect]
     Route: 048
     Dates: start: 20070101, end: 20100101

REACTIONS (2)
  - UPPER LIMB FRACTURE [None]
  - OSTEOPOROSIS [None]
